FAERS Safety Report 5602021-X (Version None)
Quarter: 2008Q1

REPORT INFORMATION
  Report Type: 
  Country: None (occurrence: None)
  Receive Date: 20080125
  Receipt Date: 20080121
  Transmission Date: 20080703
  Serious: Yes (Hospitalization, Other)
  Sender: FDA-Public Use
  Company Number: NO-RB-009072-08

PATIENT
  Age: 32 Year

DRUGS (3)
  1. SUBOXONE [Suspect]
     Dosage: DAILY DOSE OF 32 MG BUPRENORPHINE AND 8 MG NALOXONE.
     Route: 065
  2. SUBUTEX [Concomitant]
     Dosage: DOSAGE UNKNOWN
     Route: 065
  3. CLONAZEPAM [Concomitant]
     Indication: DRUG USE FOR UNKNOWN INDICATION
     Dosage: DOSAGE UNKNOWN
     Route: 065

REACTIONS (3)
  - BLOOD GLUCOSE FLUCTUATION [None]
  - OVERDOSE [None]
  - SUBSTANCE ABUSE [None]
